FAERS Safety Report 6257286-0 (Version None)
Quarter: 2009Q3

REPORT INFORMATION
  Report Type: 
  Country: None (occurrence: None)
  Receive Date: 20090706
  Receipt Date: 20090624
  Transmission Date: 20100115
  Serious: Yes (Hospitalization)
  Sender: FDA-Public Use
  Company Number: JP-ELI_LILLY_AND_COMPANY-JP200906007161

PATIENT
  Age: 36 Year
  Sex: Male
  Weight: 95 kg

DRUGS (2)
  1. ZYPREXA [Suspect]
     Route: 048
  2. PAXIL [Concomitant]
     Indication: DEPRESSION
     Route: 048

REACTIONS (1)
  - DIABETIC KETOACIDOSIS [None]
